FAERS Safety Report 15427789 (Version 1)
Quarter: 2018Q3

REPORT INFORMATION
  Report Type: Report from Study
  Country: CN (occurrence: CN)
  Receive Date: 20180926
  Receipt Date: 20180926
  Transmission Date: 20181010
  Serious: Yes (Other)
  Sender: FDA-Public Use
  Company Number: CN-ROCHE-2185988

PATIENT

DRUGS (5)
  1. CYCLOSPORINE A [Suspect]
     Active Substance: CYCLOSPORINE
     Indication: PROPHYLAXIS AGAINST TRANSPLANT REJECTION
     Dosage: WITH A POSTOPERATIVE DRUG CONCENTRATION OF 150 ? 200 NG/ML
     Route: 065
  2. GANCICLOVIR. [Suspect]
     Active Substance: GANCICLOVIR
     Indication: PNEUMONIA CYTOMEGALOVIRAL
     Route: 065
  3. MYCOPHENOLATE MOFETIL. [Suspect]
     Active Substance: MYCOPHENOLATE MOFETIL
     Indication: PROPHYLAXIS AGAINST TRANSPLANT REJECTION
     Dosage: BEFORE SURGERY
     Route: 048
  4. TACROLIMUS. [Suspect]
     Active Substance: TACROLIMUS
     Indication: PROPHYLAXIS AGAINST TRANSPLANT REJECTION
     Dosage: WITH A POSTOPERATIVE DRUG CONCENTRATION OF 8 ? 10 NG/ML
     Route: 065
  5. PREDNISONE. [Suspect]
     Active Substance: PREDNISONE
     Indication: PROPHYLAXIS AGAINST TRANSPLANT REJECTION
     Route: 065

REACTIONS (7)
  - Diarrhoea [Unknown]
  - Vomiting [Unknown]
  - Abdominal pain [Unknown]
  - Nausea [Unknown]
  - Pneumonia cytomegaloviral [Unknown]
  - Neutrophil count decreased [Unknown]
  - Hepatic function abnormal [Unknown]
